FAERS Safety Report 7001489-4 (Version None)
Quarter: 2010Q3

REPORT INFORMATION
  Report Type: 
  Country: None (occurrence: None)
  Receive Date: 20100920
  Receipt Date: 20100912
  Transmission Date: 20110219
  Serious: Yes (Hospitalization)
  Sender: FDA-Public Use
  Company Number: AT-ROCHE-726676

PATIENT
  Age: 78 Year
  Sex: Male

DRUGS (4)
  1. BEVACIZUMAB [Suspect]
     Dosage: DOSE: 380 MG ABSOLUTE
     Route: 065
     Dates: start: 20091228, end: 20100208
  2. FLUOROURACIL [Suspect]
     Indication: PRODUCT USED FOR UNKNOWN INDICATION
     Route: 042
     Dates: start: 20091228, end: 20100208
  3. FOLINIC ACID [Suspect]
     Indication: PRODUCT USED FOR UNKNOWN INDICATION
     Route: 042
     Dates: start: 20091228, end: 20100208
  4. OXALIPLATIN [Suspect]
     Indication: PRODUCT USED FOR UNKNOWN INDICATION
     Route: 042
     Dates: start: 20091228, end: 20100208

REACTIONS (6)
  - ASTHENIA [None]
  - DECREASED APPETITE [None]
  - DRY MOUTH [None]
  - HAEMATOTOXICITY [None]
  - NAUSEA [None]
  - VOMITING [None]
